FAERS Safety Report 5984929-9 (Version None)
Quarter: 2008Q4

REPORT INFORMATION
  Report Type: 
  Country: None (occurrence: None)
  Receive Date: 20081202
  Receipt Date: 20081118
  Transmission Date: 20090506
  Serious: Yes (Hospitalization)
  Sender: FDA-Public Use
  Company Number: 2007308100

PATIENT
  Age: 55 Year
  Sex: Male
  Weight: 73 kg

DRUGS (5)
  1. LISTERINE ANTISEPTIC MOUTHWASH (MENTHOL, METHYL SALICYLATE, EUCALYPTOL [Suspect]
     Indication: ALCOHOLISM
     Dosage: ^ABOUT HALF A BOTTLE^ (500ML) DAILY, ORAL
     Route: 048
     Dates: start: 20050101
  2. AMLODIPINE [Concomitant]
  3. LOSARTAN (LOSARATAN) [Concomitant]
  4. BENDROFLUMETHIAZI (BRNDROFLUMETHAZI) [Concomitant]
  5. SIMVASTATIN [Concomitant]

REACTIONS (17)
  - ALANINE AMINOTRANSFERASE INCREASED [None]
  - ALCOHOL DETOXIFICATION [None]
  - ALCOHOL WITHDRAWAL SYNDROME [None]
  - ALCOHOLISM [None]
  - ANXIETY [None]
  - ASPARTATE AMINOTRANSFERASE INCREASED [None]
  - BLOOD CREATININE INCREASED [None]
  - BLOOD POTASSIUM INCREASED [None]
  - DRUG ABUSE [None]
  - GAMMA-GLUTAMYLTRANSFERASE DECREASED [None]
  - GINGIVAL DISORDER [None]
  - HAEMOGLOBIN DECREASED [None]
  - INCORRECT DOSE ADMINISTERED [None]
  - INCORRECT ROUTE OF DRUG ADMINISTRATION [None]
  - JOB DISSATISFACTION [None]
  - PLATELET COUNT DECREASED [None]
  - RED BLOOD CELL SEDIMENTATION RATE INCREASED [None]
